FAERS Safety Report 13340604 (Version 1)
Quarter: 2017Q1

REPORT INFORMATION
  Report Type: Spontaneous
  Country: US (occurrence: US)
  Receive Date: 20170315
  Receipt Date: 20170315
  Transmission Date: 20170428
  Serious: No
  Sender: FDA-Public Use
  Company Number: None

PATIENT
  Age: 57 Year
  Sex: Female
  Weight: 85.5 kg

DRUGS (5)
  1. FLUOXETINE HCL 20MG [Suspect]
     Active Substance: FLUOXETINE HYDROCHLORIDE
     Indication: DEPRESSION
     Dosage: ?          QUANTITY:30 CAPSULE(S);?
     Route: 048
     Dates: start: 20170303, end: 20170315
  2. ADVIL [Concomitant]
     Active Substance: IBUPROFEN
  3. FLUOXETINE HCL 20MG [Suspect]
     Active Substance: FLUOXETINE HYDROCHLORIDE
     Indication: ANXIETY
     Dosage: ?          QUANTITY:30 CAPSULE(S);?
     Route: 048
     Dates: start: 20170303, end: 20170315
  4. JARROW BIFIDUS BALANCE [Concomitant]
  5. ALEVE [Concomitant]
     Active Substance: NAPROXEN SODIUM

REACTIONS (13)
  - Tinnitus [None]
  - Piloerection [None]
  - Therapy non-responder [None]
  - Headache [None]
  - Tremor [None]
  - Depression [None]
  - Tension [None]
  - Product substitution issue [None]
  - Nasal congestion [None]
  - Dyspnoea [None]
  - Negative thoughts [None]
  - Chest discomfort [None]
  - Palpitations [None]

NARRATIVE: CASE EVENT DATE: 20170313
